FAERS Safety Report 24542950 (Version 2)
Quarter: 2025Q2

REPORT INFORMATION
  Report Type: Spontaneous
  Country: US (occurrence: US)
  Receive Date: 20241024
  Receipt Date: 20250410
  Transmission Date: 20250717
  Serious: No
  Sender: AMGEN
  Company Number: US-AMGEN-USASP2024209094

PATIENT
  Age: 60 Year
  Sex: Female

DRUGS (15)
  1. OTEZLA [Suspect]
     Active Substance: APREMILAST
     Indication: Psoriatic arthropathy
     Dosage: 30 MILLIGRAM, BID, APPROXIMATELY 12 HOURS APART
     Route: 048
     Dates: start: 20240111
  2. ALPRAZOLAM [Concomitant]
     Active Substance: ALPRAZOLAM
  3. ATORVASTATIN [Concomitant]
     Active Substance: ATORVASTATIN
  4. CHLORHEXIDINE GLUCONATE [Concomitant]
     Active Substance: CHLORHEXIDINE GLUCONATE
  5. DEXAMETHASONE [Concomitant]
     Active Substance: DEXAMETHASONE
  6. DIAZEPAM [Concomitant]
     Active Substance: DIAZEPAM
  7. DICLOFENAC [Concomitant]
     Active Substance: DICLOFENAC
  8. FLUCONAZOLE [Concomitant]
     Active Substance: FLUCONAZOLE
  9. IBUPROFEN [Concomitant]
     Active Substance: IBUPROFEN
  10. IBUPROFEN [Concomitant]
     Active Substance: IBUPROFEN
  11. NP THYROID [Concomitant]
     Active Substance: LEVOTHYROXINE\LIOTHYRONINE
  12. ONDANSETRON [Concomitant]
     Active Substance: ONDANSETRON
  13. TRIAZOLAM [Concomitant]
     Active Substance: TRIAZOLAM
  14. VYVANSE [Concomitant]
     Active Substance: LISDEXAMFETAMINE DIMESYLATE
  15. ALBUTEROL [Concomitant]
     Active Substance: ALBUTEROL

REACTIONS (3)
  - Therapy non-responder [Not Recovered/Not Resolved]
  - Pain [Not Recovered/Not Resolved]
  - Sleep disorder [Unknown]

NARRATIVE: CASE EVENT DATE: 20240101
